FAERS Safety Report 19946360 (Version 1)
Quarter: 2021Q4

REPORT INFORMATION
  Report Type: Spontaneous
  Country: DE (occurrence: DE)
  Receive Date: 20211012
  Receipt Date: 20211012
  Transmission Date: 20220303
  Serious: Yes (Hospitalization)
  Sender: FDA-Public Use
  Company Number: DE-ADRED-06493-01

PATIENT
  Age: 59 Year
  Sex: Female
  Weight: 43 kg

DRUGS (14)
  1. PACLITAXEL [Suspect]
     Active Substance: PACLITAXEL
     Indication: Product used for unknown indication
     Dosage: ACCORDING TO THE SCHEME, INJECTION / INFUSION SOLUTION
     Route: 042
  2. CARBOPLATIN [Suspect]
     Active Substance: CARBOPLATIN
     Indication: Product used for unknown indication
     Dosage: ACCORDING TO THE SCHEME, INJECTION / INFUSION SOLUTION
     Route: 042
  3. BETAMETHASONE [Concomitant]
     Active Substance: BETAMETHASONE
     Dosage: MORNING AND EVENING, OINTMENT
     Route: 003
  4. DIMETICON                          /00282601/ [Concomitant]
     Indication: Flatulence
     Dosage: UNK (FOR FLATULENCE UP TO 6 TIMES DAILY, JUICE)
     Route: 048
  5. LORAZEPAM [Concomitant]
     Active Substance: LORAZEPAM
     Dosage: UP TO 3 TIMES A DAY, ORODISPERSIBLE TABLETS
     Route: 060
  6. TORSEMIDE [Concomitant]
     Active Substance: TORSEMIDE
     Dosage: 5 MILLIGRAM, QD (5 MG, 1-0-0-0, TABLETTEN)
     Route: 048
  7. FENTANYL [Concomitant]
     Active Substance: FENTANYL
     Dosage: 200 ?G, UP TO 6 TIMES A DAY, MAX 1X PER HOUR, ORODISPERSIBLE TABLETS
     Route: 060
  8. ALLOPURINOL [Concomitant]
     Active Substance: ALLOPURINOL
     Dosage: 10 MILLIGRAM, QD (100 MG, 1-0-0-0, TABLETTEN)
     Route: 048
  9. PANTOPRAZOLE [Concomitant]
     Active Substance: PANTOPRAZOLE
     Dosage: 40 MILLIGRAM, QD (40 MG, 1-0-0-0, TABLETTEN)
     Route: 048
  10. FENTANYL [Concomitant]
     Active Substance: FENTANYL
     Dosage: 25 ?G, CHANGE EVERY 3 DAYS, PLASTER
     Route: 062
  11. PREGABALIN [Concomitant]
     Active Substance: PREGABALIN
     Dosage: 50 MILLIGRAM, QD (50 MG, 0-0-1-0, KAPSELN)
     Route: 048
  12. METAMIZOLE [Concomitant]
     Active Substance: METAMIZOLE
     Dosage: 500 MILLIGRAM, QID (500 MG, 1-1-1-1, TABLETTEN)
     Route: 048
  13. LEVOTHYROXINUM NATRICUM [Concomitant]
     Dosage: 125 ?G, 1-0-0-0, TABLETTEN
     Route: 048
  14. METOCLOPRAMIDE [Concomitant]
     Active Substance: METOCLOPRAMIDE
     Dosage: 10 MILLIGRAM, TID (500 MG, 1-1-1-1, TABLETTEN)
     Route: 048

REACTIONS (3)
  - Oedema peripheral [Unknown]
  - Dyspnoea [Unknown]
  - General physical health deterioration [Unknown]
